FAERS Safety Report 10261876 (Version 1)
Quarter: 2014Q2

REPORT INFORMATION
  Report Type: Spontaneous
  Country: JP (occurrence: JP)
  Receive Date: 20140626
  Receipt Date: 20140626
  Transmission Date: 20141212
  Serious: Yes (Hospitalization)
  Sender: FDA-Public Use
  Company Number: PHHY2014JP076426

PATIENT
  Age: 47 Year
  Sex: Male

DRUGS (6)
  1. RIFAMPICIN [Suspect]
     Indication: TUBERCULOSIS
     Route: 048
  2. ISONIAZID [Suspect]
     Indication: TUBERCULOSIS
     Route: 048
  3. PYRAZINAMIDE [Suspect]
     Indication: TUBERCULOSIS
     Route: 048
  4. ETHAMBUTOL [Concomitant]
     Indication: TUBERCULOSIS
     Route: 048
  5. CICLOSPORIN [Concomitant]
     Indication: IMMUNOSUPPRESSANT DRUG THERAPY
  6. CORTICOSTEROIDS [Concomitant]
     Indication: IMMUNOSUPPRESSANT DRUG THERAPY

REACTIONS (2)
  - Liver disorder [Recovering/Resolving]
  - Hepatic failure [Recovering/Resolving]
